FAERS Safety Report 4836567-9 (Version None)
Quarter: 2005Q4

REPORT INFORMATION
  Report Type: 
  Country: None (occurrence: None)
  Receive Date: 20051121
  Receipt Date: 20051110
  Transmission Date: 20060501
  Serious: Yes (Death, Hospitalization)
  Sender: FDA-Public Use
  Company Number: 200513727GDS

PATIENT
  Age: 73 Year
  Sex: Male
  Weight: 50 kg

DRUGS (6)
  1. ASPIRIN [Suspect]
     Indication: MYOCARDIAL ISCHAEMIA
     Dosage: 100 MG, TOTAL DAILY, ORAL
     Route: 048
     Dates: start: 20030401, end: 20030601
  2. GLIBENCLAMIDE [Concomitant]
  3. LANSOPRAZOLE [Concomitant]
  4. INSULIN [Concomitant]
  5. NU-LOTAN [Concomitant]
  6. NORVASC [Concomitant]

REACTIONS (19)
  - ANAEMIA [None]
  - ARTERIOSCLEROSIS OBLITERANS [None]
  - C-REACTIVE PROTEIN INCREASED [None]
  - CARDIAC FAILURE CONGESTIVE [None]
  - CARDIAC MURMUR [None]
  - DEPRESSED LEVEL OF CONSCIOUSNESS [None]
  - DRUG INEFFECTIVE [None]
  - EOSINOPHIL PERCENTAGE INCREASED [None]
  - FAT EMBOLISM [None]
  - GANGRENE [None]
  - HYPOREFLEXIA [None]
  - INADEQUATE ANALGESIA [None]
  - MYOCARDIAL INFARCTION [None]
  - PAIN IN EXTREMITY [None]
  - PNEUMONIA ASPIRATION [None]
  - PROTEIN URINE PRESENT [None]
  - RENAL IMPAIRMENT [None]
  - UPPER GASTROINTESTINAL HAEMORRHAGE [None]
  - URINARY CASTS [None]
